FAERS Safety Report 4827590-9 (Version None)
Quarter: 2005Q4

REPORT INFORMATION
  Report Type: 
  Country: None (occurrence: None)
  Receive Date: 20051114
  Receipt Date: 20051107
  Transmission Date: 20060501
  Serious: Yes (Hospitalization, Other)
  Sender: FDA-Public Use
  Company Number: JP-JNJFOC-20050906459

PATIENT
  Age: 86 Year
  Sex: Female

DRUGS (4)
  1. ITRIZOLE [Suspect]
     Indication: NAIL TINEA
     Route: 048
  2. CALCITRIOL [Concomitant]
     Route: 065
  3. NIZATIDINE [Concomitant]
     Route: 065
  4. DILTIAZEM HYDROCHLORIDE [Concomitant]
     Route: 065

REACTIONS (1)
  - INTERSTITIAL LUNG DISEASE [None]
